FAERS Safety Report 13769432 (Version 2)
Quarter: 2017Q3

REPORT INFORMATION
  Report Type: Report from Study
  Country: US (occurrence: BR)
  Receive Date: 20170719
  Receipt Date: 20170815
  Transmission Date: 20171127
  Serious: No
  Sender: FDA-Public Use
  Company Number: US-SUNOVION-2017SUN003095

PATIENT
  Sex: Male
  Weight: 70 kg

DRUGS (6)
  1. INDACATEROL AND GLYCOPYRROLATE [Suspect]
     Active Substance: GLYCOPYRROLATE\INDACATEROL MALEATE
     Dosage: 1 DF, QD
     Route: 055
  2. GLYCOPYRROLATE. [Suspect]
     Active Substance: GLYCOPYRROLATE
     Indication: PRODUCT USED FOR UNKNOWN INDICATION
     Dosage: UNK, REGIMEN #1
     Route: 065
  3. INDACATEROL AND GLYCOPYRROLATE [Suspect]
     Active Substance: GLYCOPYRROLATE\INDACATEROL MALEATE
     Indication: LUNG DISORDER
     Dosage: 110 MCG + 50 MCG, BID
     Route: 055
     Dates: start: 201706
  4. QUETIAPINE. [Concomitant]
     Active Substance: QUETIAPINE
  5. INDACATEROL [Suspect]
     Active Substance: INDACATEROL
     Indication: PRODUCT USED FOR UNKNOWN INDICATION
     Dosage: UNK, REGIMEN #1
     Route: 065
  6. OXIMAX [Concomitant]
     Active Substance: MOMETASONE FUROATE

REACTIONS (4)
  - Pulmonary vascular disorder [Unknown]
  - Product use in unapproved indication [Unknown]
  - Drug prescribing error [Unknown]
  - Bronchospasm [Unknown]
